FAERS Safety Report 8908461 (Version 1)
Quarter: 2012Q4

REPORT INFORMATION
  Report Type: 
  Country: US (occurrence: US)
  Receive Date: 20121113
  Receipt Date: 20121113
  Transmission Date: 20130627
  Serious: No
  Sender: FDA-Public Use
  Company Number: US-AMGEN-USASP2012039550

PATIENT
  Age: 66 Year
  Sex: Female
  Weight: 73.92 kg

DRUGS (10)
  1. ENBREL [Suspect]
     Indication: PRODUCT USED FOR UNKNOWN INDICATION
     Dosage: 50 mg/ml, qwk
     Route: 058
  2. FOLIC ACID [Concomitant]
     Dosage: 1 mg, UNK
  3. MULTIVITAMIN                       /00097801/ [Concomitant]
     Dosage: UNK
  4. MAGNESIUM [Concomitant]
     Dosage: 200 mg, UNK
  5. ESTER-C                            /00008001/ [Concomitant]
  6. VITAMIN B-12 [Concomitant]
     Dosage: 1000 mug, UNK
  7. VITAMIN D /00107901/ [Concomitant]
     Dosage: 2000 unit, UNK
  8. CALCIUM D                          /00944201/ [Concomitant]
     Dosage: 600 UNK, UNK
  9. GARLIC                             /01570501/ [Concomitant]
     Dosage: 3 mg, UNK
  10. TURMERIC [Concomitant]

REACTIONS (1)
  - Injection site pain [Unknown]
